FAERS Safety Report 9734361 (Version 3)
Quarter: 2013Q4

REPORT INFORMATION
  Report Type: Report from Study
  Country: GR (occurrence: GR)
  Receive Date: 20131206
  Receipt Date: 20131216
  Transmission Date: 20140711
  Serious: Yes (Hospitalization, Other)
  Sender: FDA-Public Use
  Company Number: GR-ROCHE-1303086

PATIENT
  Age: 73 Year
  Sex: Female
  Weight: 105 kg

DRUGS (6)
  1. ROACTEMRA [Suspect]
     Indication: RHEUMATOID ARTHRITIS
     Route: 042
     Dates: start: 20131014
  2. TRIATEC (GREECE) [Concomitant]
     Indication: BLOOD PRESSURE
     Dosage: 1 TAB EVERY MORNING
     Route: 065
     Dates: start: 2006
  3. PRADAXA [Concomitant]
     Dosage: 1 TAB MORNING AND EVENING
     Route: 065
     Dates: start: 2012
  4. RYTMONORM [Concomitant]
     Indication: PALPITATIONS
     Dosage: HALF IN THE MORNING-HALF IN THE EVENING
     Route: 065
     Dates: start: 2010
  5. CALCIORAL [Concomitant]
     Indication: OSTEOPOROSIS
     Dosage: 1 AT NOON AND 1 IN THE EVENING
     Route: 065
     Dates: start: 2012
  6. PREZOLON [Concomitant]
     Indication: RHEUMATOID ARTHRITIS
     Route: 065
     Dates: start: 201310

REACTIONS (8)
  - Pyrexia [Unknown]
  - Haemorrhoidal haemorrhage [Recovering/Resolving]
  - Haemorrhoids [Unknown]
  - Visual acuity reduced [Not Recovered/Not Resolved]
  - Colour blindness acquired [Not Recovered/Not Resolved]
  - Dysphonia [Unknown]
  - Increased upper airway secretion [Unknown]
  - Tinnitus [Unknown]
